FAERS Safety Report 16168127 (Version 1)
Quarter: 2019Q2

REPORT INFORMATION
  Report Type: Spontaneous
  Country: US (occurrence: US)
  Receive Date: 20190408
  Receipt Date: 20190408
  Transmission Date: 20190711
  Serious: No
  Sender: FDA-Public Use
  Company Number: US-AMGEN-USASP2019054380

PATIENT
  Age: 73 Year
  Sex: Female

DRUGS (18)
  1. TEMAZEPAM. [Concomitant]
     Active Substance: TEMAZEPAM
     Dosage: 15 MILLIGRAM
     Route: 065
  2. VITAMIN B12 [Concomitant]
     Active Substance: CYANOCOBALAMIN
     Dosage: 2500 MICROGRAM
     Route: 065
  3. AUGMENTIN [Concomitant]
     Active Substance: AMOXICILLIN\CLAVULANATE POTASSIUM
     Dosage: 875 MILLIGRAM
     Route: 065
  4. OMEPRAZOLE. [Concomitant]
     Active Substance: OMEPRAZOLE
     Dosage: 20 MILLIGRAM
     Route: 065
  5. TRIAMCINOLON [TRIAMCINOLONE] [Concomitant]
     Dosage: UNK
     Route: 065
  6. WATER. [Concomitant]
     Active Substance: WATER
     Dosage: UNK
     Route: 065
  7. IRON [Concomitant]
     Active Substance: IRON
     Dosage: UNK
     Route: 065
  8. LEVOTHYROXIN [Concomitant]
     Active Substance: LEVOTHYROXINE
     Dosage: 50 MICROGRAM
     Route: 065
  9. MULTI [Concomitant]
     Dosage: UNK UNK, QD
     Route: 065
  10. ENBREL [Suspect]
     Active Substance: ETANERCEPT
     Indication: OSTEOPOROSIS
     Dosage: 50 MILLIGRAM, QWK
     Route: 058
  11. METHOTREXATE. [Concomitant]
     Active Substance: METHOTREXATE
     Dosage: 2.5 MILLIGRAM
     Route: 065
  12. SENNA [SENNA ALEXANDRINA] [Concomitant]
     Active Substance: SENNA LEAF
     Dosage: 15 MILLIGRAM
     Route: 065
  13. VENTOLIN HFA [Concomitant]
     Active Substance: ALBUTEROL SULFATE
     Dosage: UNK
     Route: 065
  14. FUROSEMIDE. [Concomitant]
     Active Substance: FUROSEMIDE
     Dosage: 20 MILLIGRAM
     Route: 065
  15. PREDNISONE. [Concomitant]
     Active Substance: PREDNISONE
     Dosage: 2.5 MILLIGRAM
     Route: 065
  16. TIZANIDINE. [Concomitant]
     Active Substance: TIZANIDINE
     Dosage: 4 MILLIGRAM
     Route: 065
  17. POTASSIUM [Concomitant]
     Active Substance: POTASSIUM
     Dosage: UNK
     Route: 065
  18. TRAMADOL HCL [Concomitant]
     Active Substance: TRAMADOL HYDROCHLORIDE
     Dosage: 50 MILLIGRAM
     Route: 065

REACTIONS (4)
  - Off label use [Unknown]
  - Headache [Unknown]
  - Fatigue [Unknown]
  - Psoriasis [Unknown]
